FAERS Safety Report 10058322 (Version 1)
Quarter: 2014Q2

REPORT INFORMATION
  Report Type: Spontaneous
  Country: US (occurrence: None)
  Receive Date: 20140402
  Receipt Date: 20140402
  Transmission Date: 20141212
  Serious: Yes (Life-Threatening)
  Sender: FDA-Public Use
  Company Number: FK201401012

PATIENT
  Age: 79 Year
  Sex: Male
  Weight: 87.4 kg

DRUGS (2)
  1. HEPARIN SODIUM INJECTION, USP (HEPARIN SODIUM) (HEPARIN SODIUM) [Suspect]
     Indication: PRODUCT USED FOR UNKNOWN INDICATION
     Dosage: 31000 IU, ONCE, UNKNOWN
     Dates: start: 20140318, end: 20140318
  2. PROTAMINE SULFATE INJECTION, USP (PROTAMINE SULFATE) (PROTAMINE SULFATE) [Suspect]
     Indication: HEPARIN NEUTRALISATION THERAPY
     Route: 042
     Dates: start: 20140318, end: 20140318

REACTIONS (2)
  - Circulatory collapse [None]
  - Haemorrhage [None]
